FAERS Safety Report 18129059 (Version 1)
Quarter: 2020Q3

REPORT INFORMATION
  Report Type: Spontaneous
  Country: US (occurrence: US)
  Receive Date: 20200807
  Receipt Date: 20200807
  Transmission Date: 20201103
  Serious: Yes (Death)
  Sender: FDA-Public Use
  Company Number: None

PATIENT
  Age: 24 Year
  Sex: Female
  Weight: 139.71 kg

DRUGS (9)
  1. DOCOSATE [Concomitant]
  2. ENALAPRIL [Concomitant]
     Active Substance: ENALAPRIL
  3. ERGOCALCIFEROT [Concomitant]
  4. CLOZAPINE TAB 350MG [Suspect]
     Active Substance: CLOZAPINE
     Indication: SCHIZOAFFECTIVE DISORDER
     Route: 048
     Dates: start: 20200427, end: 20200617
  5. BB/ CODYL [Concomitant]
  6. BUPRENORPHINE NALOXONE [Concomitant]
     Active Substance: BUPRENORPHINE\NALOXONE
  7. MEDROXYPROGESTERONE [Concomitant]
     Active Substance: MEDROXYPROGESTERONE
  8. GABAPENTIN. [Concomitant]
     Active Substance: GABAPENTIN
  9. ATENOLOL. [Concomitant]
     Active Substance: ATENOLOL

REACTIONS (6)
  - Cardio-respiratory arrest [None]
  - Hypertension [None]
  - Hallucination, auditory [None]
  - Congenital cystic kidney disease [None]
  - Asthma [None]
  - Constipation [None]

NARRATIVE: CASE EVENT DATE: 20200618
